FAERS Safety Report 6479663-5 (Version None)
Quarter: 2009Q4

REPORT INFORMATION
  Report Type: 
  Country: None (occurrence: None)
  Receive Date: 20091202
  Receipt Date: 20091117
  Transmission Date: 20100525
  Serious: Yes (Other)
  Sender: FDA-Public Use
  Company Number: AUR-APL-2009-01339

PATIENT
  Age: 81 Year
  Sex: Male

DRUGS (5)
  1. AMLODIPINE [Suspect]
  2. NITROFURANTOIN MACROCRYSTALLINE [Suspect]
     Indication: PROPHYLAXIS URINARY TRACT INFECTION
     Dates: start: 20060101, end: 20060901
  3. RAMIPRIL [Suspect]
  4. ALFACALCIDOL [Suspect]
  5. PARACETAMOL [Suspect]

REACTIONS (5)
  - CATARACT OPERATION [None]
  - INTRACRANIAL PRESSURE INCREASED [None]
  - PAPILLOEDEMA [None]
  - THROMBOCYTOPENIA [None]
  - VISUAL ACUITY REDUCED [None]
